FAERS Safety Report 7520704-1 (Version None)
Quarter: 2011Q2

REPORT INFORMATION
  Report Type: 
  Country: None (occurrence: None)
  Receive Date: 20110603
  Receipt Date: 20110525
  Transmission Date: 20111010
  Serious: Yes (Other)
  Sender: FDA-Public Use
  Company Number: JP-BRISTOL-MYERS SQUIBB COMPANY-15746852

PATIENT
  Age: 36 Year
  Sex: Female

DRUGS (3)
  1. ABILIFY [Suspect]
     Route: 048
  2. LORAZEPAM [Concomitant]
     Dosage: TABS
  3. ZOLOFT [Concomitant]
     Dosage: TABS

REACTIONS (2)
  - ABORTION INDUCED [None]
  - PREGNANCY [None]
